FAERS Safety Report 5043881-3 (Version None)
Quarter: 2006Q3

REPORT INFORMATION
  Report Type: 
  Country: None (occurrence: None)
  Receive Date: 20060706
  Receipt Date: 20050531
  Transmission Date: 20061208
  Serious: Yes (Hospitalization, Other)
  Sender: FDA-Public Use
  Company Number: PHEH2005US06164

PATIENT
  Age: 4 Year
  Sex: Male

DRUGS (1)
  1. ELIDEL [Suspect]
     Indication: ECZEMA
     Dosage: TWICE DAILY
     Route: 061
     Dates: start: 20021001, end: 20041001

REACTIONS (6)
  - ABDOMINAL DISTENSION [None]
  - ABDOMINAL PAIN UPPER [None]
  - HEPATOBLASTOMA [None]
  - NIGHT SWEATS [None]
  - RADIATION EXPOSURE [None]
  - SURGERY [None]
